FAERS Safety Report 14219330 (Version 2)
Quarter: 2018Q3

REPORT INFORMATION
  Report Type: Spontaneous
  Country: US (occurrence: US)
  Receive Date: 20171123
  Receipt Date: 20180802
  Transmission Date: 20181010
  Serious: Yes (Hospitalization)
  Sender: FDA-Public Use
  Company Number: US-JNJFOC-20171027065

PATIENT
  Age: 48 Year
  Sex: Female
  Weight: 113.08 kg

DRUGS (1)
  1. INVOKANA [Suspect]
     Active Substance: CANAGLIFLOZIN
     Indication: TYPE 2 DIABETES MELLITUS
     Route: 048
     Dates: start: 201401

REACTIONS (3)
  - Dehydration [Unknown]
  - Acute kidney injury [Unknown]
  - Shock [Unknown]

NARRATIVE: CASE EVENT DATE: 201602
